FAERS Safety Report 16314388 (Version 1)
Quarter: 2019Q2

REPORT INFORMATION
  Report Type: Spontaneous
  Country: US (occurrence: US)
  Receive Date: 20190514
  Receipt Date: 20190514
  Transmission Date: 20190711
  Serious: Yes (Hospitalization)
  Sender: FDA-Public Use
  Company Number: None

PATIENT
  Age: 67 Year
  Sex: Male

DRUGS (12)
  1. CYCLOBENZAPR [Concomitant]
     Active Substance: CYCLOBENZAPRINE
  2. FAST CLIX [Concomitant]
  3. GLIPIZIDE. [Concomitant]
     Active Substance: GLIPIZIDE
  4. PREDNISONE. [Suspect]
     Active Substance: PREDNISONE
     Indication: RENAL TRANSPLANT
     Route: 048
     Dates: start: 20151014
  5. COUMADIN [Concomitant]
     Active Substance: WARFARIN SODIUM
  6. SIROLIMUS. [Concomitant]
     Active Substance: SIROLIMUS
  7. MYCOPHENOLATE [Suspect]
     Active Substance: MYCOPHENOLIC ACID
     Indication: RENAL TRANSPLANT
     Route: 048
     Dates: start: 20150904
  8. CARVEDILOL. [Concomitant]
     Active Substance: CARVEDILOL
  9. LEVEMIR [Concomitant]
     Active Substance: INSULIN DETEMIR
  10. KLONOPIN [Concomitant]
     Active Substance: CLONAZEPAM
  11. HYDROCO/APAP [Concomitant]
     Active Substance: ACETAMINOPHEN\HYDROCODONE
  12. CLONAZEPAM. [Concomitant]
     Active Substance: CLONAZEPAM

REACTIONS (1)
  - Diabetes mellitus [None]

NARRATIVE: CASE EVENT DATE: 20190413
